FAERS Safety Report 7620999-X (Version None)
Quarter: 2011Q3

REPORT INFORMATION
  Report Type: 
  Country: None (occurrence: None)
  Receive Date: 20110719
  Receipt Date: 20100827
  Transmission Date: 20111222
  Serious: No
  Sender: FDA-Public Use
  Company Number: US-KINGPHARMUSA00001-K201001087

PATIENT
  Sex: Female
  Weight: 48.98 kg

DRUGS (1)
  1. LEVOXYL [Suspect]
     Indication: THYROID CANCER
     Dosage: 75 MCG, QD
     Route: 048
     Dates: start: 20100401, end: 20100709

REACTIONS (6)
  - POLYMENORRHOEA [None]
  - ANAEMIA [None]
  - THYROID FUNCTION TEST ABNORMAL [None]
  - WEIGHT DECREASED [None]
  - DIARRHOEA [None]
  - ABDOMINAL PAIN UPPER [None]
